FAERS Safety Report 11172731 (Version 1)
Quarter: 2015Q2

REPORT INFORMATION
  Report Type: Spontaneous
  Country: US (occurrence: US)
  Receive Date: 20150608
  Receipt Date: 20150608
  Transmission Date: 20150821
  Serious: No
  Sender: FDA-Public Use
  Company Number: US-PERRIGO-14US008591

PATIENT
  Sex: Female

DRUGS (1)
  1. DIHYDROERGOTAMINE MESYLATE RX 1 MG/ML 9V8 [Suspect]
     Active Substance: DIHYDROERGOTAMINE MESYLATE
     Indication: PRODUCT USED FOR UNKNOWN INDICATION
     Dosage: UNK, IV PUSH
     Route: 042
     Dates: start: 201408

REACTIONS (1)
  - Burning sensation [Unknown]

NARRATIVE: CASE EVENT DATE: 201408
